FAERS Safety Report 4976210-1 (Version None)
Quarter: 2006Q2

REPORT INFORMATION
  Report Type: 
  Country: None (occurrence: None)
  Receive Date: 20060419
  Receipt Date: 20060322
  Transmission Date: 20061013
  Serious: Yes (Death, Hospitalization, Other)
  Sender: FDA-Public Use
  Company Number: PHHO2006US04777

PATIENT
  Age: 70 Year
  Sex: Male
  Weight: 91.7 kg

DRUGS (9)
  1. GLEEVEC [Suspect]
     Indication: THYROID GLAND CANCER
     Dosage: 400 MG, BID
     Route: 048
     Dates: start: 20060123, end: 20060222
  2. GLEEVEC [Suspect]
     Dosage: 300 MG, BID
     Route: 048
     Dates: start: 20060308, end: 20060317
  3. GLEEVEC [Suspect]
     Dosage: NO TREATMENT
     Dates: start: 20060223, end: 20060307
  4. SYNTHROID [Concomitant]
     Indication: HYPOTHYROIDISM
     Dosage: UNK, UNK
     Dates: start: 20051223
  5. PAXIL [Suspect]
     Indication: DEPRESSION
     Dates: start: 20051101
  6. DEXAMETHASONE [Suspect]
     Indication: FACE OEDEMA
     Dates: start: 20060123
  7. SPIRONOLACTONE [Suspect]
  8. MONOPRIL [Suspect]
  9. LOPRESSOR [Suspect]

REACTIONS (12)
  - ASPIRATION [None]
  - ASTHENIA [None]
  - BLOOD ALBUMIN DECREASED [None]
  - CONSTIPATION [None]
  - FAILURE TO THRIVE [None]
  - FATIGUE [None]
  - METASTATIC NEOPLASM [None]
  - OEDEMA PERIPHERAL [None]
  - ORAL INTAKE REDUCED [None]
  - PLEURAL EFFUSION [None]
  - SCROTAL SWELLING [None]
  - THERAPY NON-RESPONDER [None]
